FAERS Safety Report 17764560 (Version 1)
Quarter: 2020Q2

REPORT INFORMATION
  Report Type: Spontaneous
  Country: IT (occurrence: IT)
  Receive Date: 20200511
  Receipt Date: 20200511
  Transmission Date: 20200714
  Serious: Yes (Hospitalization, Other)
  Sender: FDA-Public Use
  Company Number: IT-SA-2020SA120325

PATIENT
  Age: 32 Year
  Sex: Female

DRUGS (4)
  1. STILNOX [Suspect]
     Active Substance: ZOLPIDEM TARTRATE
     Indication: DRUG ABUSE
     Dosage: 10 DF, TOTAL
     Route: 048
     Dates: start: 20200422, end: 20200422
  2. SERTRALINE HYDROCHLORIDE. [Suspect]
     Active Substance: SERTRALINE HYDROCHLORIDE
     Indication: DRUG ABUSE
     Dosage: UNK
     Route: 048
     Dates: start: 20200422, end: 20200422
  3. LORAZEPAM. [Suspect]
     Active Substance: LORAZEPAM
     Indication: DRUG ABUSE
     Dosage: UNK
     Route: 065
     Dates: start: 20200422, end: 20200422
  4. OLANZAPINE. [Suspect]
     Active Substance: OLANZAPINE
     Indication: DRUG ABUSE
     Dosage: UNK
     Route: 048
     Dates: start: 20200422, end: 20200422

REACTIONS (4)
  - Coma [Recovering/Resolving]
  - Drug abuse [Unknown]
  - Toxicity to various agents [Unknown]
  - Hyponatraemia [Recovering/Resolving]

NARRATIVE: CASE EVENT DATE: 20200423
